FAERS Safety Report 8414234-2 (Version None)
Quarter: 2012Q2

REPORT INFORMATION
  Report Type: 
  Country: None (occurrence: None)
  Receive Date: 20120605
  Receipt Date: 20120601
  Transmission Date: 20120825
  Serious: Yes (Other)
  Sender: FDA-Public Use
  Company Number: US-PFIZER INC-2012132692

PATIENT
  Sex: Female
  Weight: 68 kg

DRUGS (4)
  1. SIMVASTATIN [Suspect]
     Dosage: UNK
  2. METFORMIN HCL [Suspect]
     Indication: DIABETES MELLITUS
     Dosage: 500 MG, 2X/DAY
  3. LIPITOR [Suspect]
     Indication: BLOOD CHOLESTEROL ABNORMAL
     Dosage: 20 MG, DAILY
  4. SOMAVERT [Suspect]
     Indication: ACROMEGALY
     Dosage: 15 MG, DAILY

REACTIONS (6)
  - RASH [None]
  - PRURITUS [None]
  - DRUG INEFFECTIVE [None]
  - URTICARIA [None]
  - LICHEN PLANUS [None]
  - VITAMIN D DEFICIENCY [None]
